FAERS Safety Report 22537442 (Version 1)
Quarter: 2023Q2

REPORT INFORMATION
  Report Type: Spontaneous
  Country: US (occurrence: None)
  Receive Date: 20230607
  Receipt Date: 20230607
  Transmission Date: 20230722
  Serious: Yes (Other)
  Sender: FDA-Public Use
  Company Number: None

PATIENT
  Age: 67 Year
  Sex: Female
  Weight: 60.75 kg

DRUGS (9)
  1. SIMBRINZA [Suspect]
     Active Substance: BRIMONIDINE TARTRATE\BRINZOLAMIDE
     Indication: Glaucoma
     Dosage: OTHER QUANTITY : 1 DROP(S);?FREQUENCY : TWICE A DAY;?
     Route: 047
     Dates: start: 20230525, end: 20230531
  2. Armor/NP thyroid [Concomitant]
  3. Tumeric Forte [Concomitant]
  4. MAGNESIUM LACTATE [Concomitant]
     Active Substance: MAGNESIUM LACTATE
  5. Vitamin B Multivitamin [Concomitant]
  6. PROTEOLYTIC ENZYMES [Concomitant]
  7. Omega 3 Cod Liver Oil capsules [Concomitant]
  8. COENZYME Q10 [Concomitant]
     Active Substance: DIETARY SUPPLEMENT\UBIDECARENONE
  9. ZINC [Concomitant]
     Active Substance: ZINC

REACTIONS (6)
  - Dizziness [None]
  - Dry eye [None]
  - Aphasia [None]
  - Memory impairment [None]
  - Speech disorder [None]
  - Aphasia [None]
